FAERS Safety Report 8000404-4 (Version None)
Quarter: 2011Q4

REPORT INFORMATION
  Report Type: 
  Country: None (occurrence: None)
  Receive Date: 20111222
  Receipt Date: 20101028
  Transmission Date: 20120403
  Serious: Yes (Other)
  Sender: FDA-Public Use
  Company Number: US-BRISTOL-MYERS SQUIBB COMPANY-15361785

PATIENT
  Sex: Male

DRUGS (5)
  1. TRICOR [Suspect]
  2. RADIATION THERAPY [Suspect]
  3. AVAPRO [Suspect]
  4. PRAVACHOL [Suspect]
  5. ACTOS [Suspect]

REACTIONS (3)
  - ERECTILE DYSFUNCTION [None]
  - RECTAL CANCER STAGE III [None]
  - DEPRESSION [None]
